FAERS Safety Report 14392168 (Version 1)
Quarter: 2018Q1

REPORT INFORMATION
  Report Type: Spontaneous
  Country: GB (occurrence: GB)
  Receive Date: 20180116
  Receipt Date: 20180116
  Transmission Date: 20180509
  Serious: Yes (Hospitalization)
  Sender: FDA-Public Use
  Company Number: GB-TEVA-2018-GB-845006

PATIENT
  Age: 89 Year
  Sex: Female
  Weight: 76 kg

DRUGS (23)
  1. PARACETAMOL [Concomitant]
     Active Substance: ACETAMINOPHEN
     Route: 065
     Dates: start: 20170316
  2. BISOPROLOL [Concomitant]
     Active Substance: BISOPROLOL
     Dates: start: 20170316
  3. ZOPICLONE [Concomitant]
     Active Substance: ZOPICLONE
     Dosage: AT NIGHT
     Dates: start: 20170316
  4. CASSIA [Concomitant]
     Dosage: TAKE 1 OR 2 AT NIGHT
     Dates: start: 20170316
  5. ACETYLSALICYLIC ACID [Concomitant]
     Active Substance: ASPIRIN
     Dates: start: 20170629
  6. MORPHINE SULFATE. [Concomitant]
     Active Substance: MORPHINE SULFATE
     Dosage: USE AS DIRECTED
     Dates: start: 20170922, end: 20171020
  7. CETIRIZINE [Concomitant]
     Active Substance: CETIRIZINE HYDROCHLORIDE
     Dates: start: 20170316
  8. SALBUTAMOL [Concomitant]
     Active Substance: ALBUTEROL
     Dates: start: 20170316
  9. LINAGLIPTIN [Concomitant]
     Active Substance: LINAGLIPTIN
     Dates: start: 20170316
  10. COCODAMOL [Concomitant]
     Active Substance: ACETAMINOPHEN\CODEINE PHOSPHATE
     Dosage: TAKE 1-2 4 TIMES/DAY
     Dates: start: 20171201
  11. CLARITHROMYCIN. [Concomitant]
     Active Substance: CLARITHROMYCIN
     Dates: start: 20171201
  12. OMEPRAZOLE. [Concomitant]
     Active Substance: OMEPRAZOLE
     Dates: start: 20170316
  13. FUROSEMIDE. [Concomitant]
     Active Substance: FUROSEMIDE
     Dosage: AS DIRECTED
     Dates: start: 20170316
  14. PRAVASTATIN. [Concomitant]
     Active Substance: PRAVASTATIN
     Dosage: AT NIGHT
     Dates: start: 20170316
  15. COSMOCOL [Concomitant]
     Dosage: USE AS DIRECTED
     Dates: start: 20170316
  16. DICLOFENAC DIETHYLAMINE [Concomitant]
     Active Substance: DICLOFENAC DIETHYLAMINE
     Dates: start: 20170316
  17. AMOXICILLIN. [Suspect]
     Active Substance: AMOXICILLIN
     Route: 065
     Dates: start: 20171201
  18. CO-AMOXICLAV [Concomitant]
     Active Substance: AMOXICILLIN\CLAVULANIC ACID
     Dates: start: 20171201
  19. BUTEC [Concomitant]
     Active Substance: BUPRENORPHINE
     Dosage: AS DIRECTED
     Dates: start: 20170316
  20. INSTILLAGEL [Concomitant]
     Active Substance: CHLORHEXIDINE GLUCONATE\LIDOCAINE HYDROCHLORIDE
     Dosage: USE AS DIRECTED
     Dates: start: 20171128, end: 20171129
  21. QUININE [Concomitant]
     Active Substance: QUININE
     Dosage: AT NIGHT
     Dates: start: 20170316
  22. ALENDRONIC ACID [Concomitant]
     Active Substance: ALENDRONIC ACID
     Dates: start: 20170929
  23. ADCAL [Concomitant]
     Active Substance: CALCIUM CARBONATE
     Dates: start: 20170929

REACTIONS (1)
  - Lip swelling [Recovering/Resolving]

NARRATIVE: CASE EVENT DATE: 20171201
